FAERS Safety Report 8522433-4 (Version None)
Quarter: 2012Q3

REPORT INFORMATION
  Report Type: 
  Country: None (occurrence: None)
  Receive Date: 20120719
  Receipt Date: 20120713
  Transmission Date: 20120928
  Serious: No
  Sender: FDA-Public Use
  Company Number: US-BAYER-2012-070937

PATIENT
  Age: 48 Year
  Sex: Female

DRUGS (3)
  1. MIRENA [Suspect]
     Indication: MENORRHAGIA
     Dosage: 20 MCG/24HR, CONT
     Route: 015
     Dates: start: 20120710, end: 20120710
  2. UNKNOWN DRUG [Concomitant]
     Indication: UTERINE CERVIX DILATION PROCEDURE
     Dosage: UNK
     Dates: start: 20120709
  3. MIRENA [Suspect]
     Indication: CONTRACEPTION

REACTIONS (2)
  - DEVICE EXPULSION [None]
  - PROCEDURAL PAIN [None]
